FAERS Safety Report 4675644-2 (Version None)
Quarter: 2005Q2

REPORT INFORMATION
  Report Type: 
  Country: None (occurrence: None)
  Receive Date: 20050527
  Receipt Date: 20050520
  Transmission Date: 20051028
  Serious: Yes (Other)
  Sender: FDA-Public Use
  Company Number: PHBS2005DE07313

PATIENT
  Age: 10 Year
  Sex: Male

DRUGS (6)
  1. SIMULECT [Suspect]
     Indication: LIVER TRANSPLANT
     Dosage: 20 MG, ONCE/SINGLE
     Route: 065
  2. SIMULECT [Suspect]
     Dosage: 20 MG, ONCE/SINGLE
     Route: 065
  3. CELLCEPT [Suspect]
     Indication: LIVER TRANSPLANT
     Dosage: 300 MG/M2, BID
  4. PREDNISOLONE [Suspect]
     Indication: LIVER TRANSPLANT
     Dosage: 60 MG/M2/D
     Route: 065
  5. PREDNISOLONE [Suspect]
     Dosage: 0.1 MG/KG/D
     Route: 065
  6. SANDIMMUNE [Suspect]
     Indication: LIVER TRANSPLANT
     Dosage: 5 MG/KG, BID
     Route: 065

REACTIONS (5)
  - BLOOD CREATININE INCREASED [None]
  - BLOOD IMMUNOGLOBULIN A DECREASED [None]
  - BLOOD IMMUNOGLOBULIN G DECREASED [None]
  - HYPOGAMMAGLOBULINAEMIA [None]
  - NEPHROPATHY TOXIC [None]
